FAERS Safety Report 4443858-2 (Version None)
Quarter: 2004Q3

REPORT INFORMATION
  Report Type: 
  Country: None (occurrence: None)
  Receive Date: 20040729
  Receipt Date: 20040223
  Transmission Date: 20050211
  Serious: Yes (Death)
  Sender: FDA-Public Use
  Company Number: US-JNJFOC-20040205342

PATIENT
  Age: 49 Year
  Sex: Male

DRUGS (1)
  1. RISPERDAL [Suspect]
     Dosage: 3 MG, 2 IN 1 DAY, ORAL
     Route: 048
     Dates: end: 20040101

REACTIONS (1)
  - COMPLETED SUICIDE [None]
